FAERS Safety Report 6336393-8 (Version None)
Quarter: 2009Q3

REPORT INFORMATION
  Report Type: 
  Country: None (occurrence: None)
  Receive Date: 20090828
  Receipt Date: 20090818
  Transmission Date: 20100115
  Serious: Yes (Hospitalization)
  Sender: FDA-Public Use
  Company Number: ADR13152009

PATIENT
  Age: 29 Year
  Sex: Female

DRUGS (1)
  1. CITALOPRAM HYDROBROMIDE [Suspect]
     Indication: DEPRESSION
     Dosage: 20MG ORAL
     Route: 048

REACTIONS (5)
  - ANORGASMIA [None]
  - APHONIA [None]
  - INSOMNIA [None]
  - LOSS OF LIBIDO [None]
  - WEIGHT INCREASED [None]
